FAERS Safety Report 10181962 (Version 2)
Quarter: 2014Q2

REPORT INFORMATION
  Report Type: Spontaneous
  Country: TR (occurrence: TR)
  Receive Date: 20140519
  Receipt Date: 20140529
  Transmission Date: 20141212
  Serious: Yes (Other)
  Sender: FDA-Public Use
  Company Number: TR-009507513-1405TUR009308

PATIENT
  Age: 36 Year
  Sex: Male

DRUGS (2)
  1. MONTELUKAST SODIUM [Suspect]
     Indication: ASTHMA
     Dosage: 10 MG, QD
     Route: 048
  2. MONTELUKAST SODIUM [Suspect]
     Indication: SINUSITIS

REACTIONS (1)
  - Allergic granulomatous angiitis [Not Recovered/Not Resolved]
